FAERS Safety Report 8506445-2 (Version None)
Quarter: 2012Q3

REPORT INFORMATION
  Report Type: 
  Country: None (occurrence: None)
  Receive Date: 20120712
  Receipt Date: 20120710
  Transmission Date: 20120928
  Serious: Yes (Other)
  Sender: FDA-Public Use
  Company Number: US-FRI-1000030844

PATIENT
  Age: 57 Year
  Sex: Male

DRUGS (6)
  1. VIIBRYD [Suspect]
     Indication: DEPRESSION
     Dosage: 10 MG
     Route: 048
     Dates: start: 20120501, end: 20120501
  2. VIIBRYD [Suspect]
     Indication: POST-TRAUMATIC STRESS DISORDER
  3. VIIBRYD [Suspect]
     Dosage: 20 MG
     Route: 048
     Dates: start: 20120501, end: 20120501
  4. VIIBRYD [Suspect]
  5. CINNAMON [Suspect]
     Indication: HYPERGLYCAEMIA
     Dates: start: 20120501, end: 20120528
  6. XANAX [Concomitant]

REACTIONS (5)
  - TACHYCARDIA [None]
  - FLUSHING [None]
  - HYPERGLYCAEMIA [None]
  - HYPERHIDROSIS [None]
  - HYPOGLYCAEMIA [None]
